FAERS Safety Report 5146187-7 (Version None)
Quarter: 2006Q4

REPORT INFORMATION
  Report Type: 
  Country: None (occurrence: None)
  Receive Date: 20061108
  Receipt Date: 20061031
  Transmission Date: 20070319
  Serious: Yes (Other)
  Sender: FDA-Public Use
  Company Number: PT-ROCHE-469406

PATIENT
  Age: 40 Year
  Sex: Female
  Weight: 54 kg

DRUGS (4)
  1. COPEGUS [Suspect]
     Indication: HEPATITIS C
     Dosage: FORM REPORTED AS FILMCOATED TABLET.
     Route: 048
     Dates: start: 20060918, end: 20060921
  2. COPEGUS [Suspect]
     Route: 048
  3. COPEGUS [Suspect]
     Route: 048
  4. PEGASYS [Concomitant]
     Indication: HEPATITIS C
     Route: 058
     Dates: start: 20060918, end: 20060921

REACTIONS (2)
  - SKIN EXFOLIATION [None]
  - TOXIC SKIN ERUPTION [None]
